FAERS Safety Report 4409768-1 (Version None)
Quarter: 2004Q3

REPORT INFORMATION
  Report Type: 
  Country: None (occurrence: None)
  Receive Date: 20040727
  Receipt Date: 20040727
  Transmission Date: 20050211
  Serious: Yes (Life-Threatening, Hospitalization)
  Sender: FDA-Public Use
  Company Number: None

PATIENT
  Age: 44 Year
  Sex: Female

DRUGS (9)
  1. ZOFRAN [Suspect]
     Indication: NAUSEA
     Dosage: 4MG  NOW  INTRAVENOUS
     Route: 042
     Dates: start: 20040713, end: 20040713
  2. LIPITOR [Concomitant]
  3. LASIX [Concomitant]
  4. LISINOPRIL [Concomitant]
  5. COUMADIN [Concomitant]
  6. SYNTHROID [Concomitant]
  7. HYDROCODONE [Concomitant]
  8. ALPRAZOLAM [Concomitant]
  9. PAXIL [Concomitant]

REACTIONS (3)
  - SWOLLEN TONGUE [None]
  - THROAT TIGHTNESS [None]
  - URTICARIA [None]
